FAERS Safety Report 16867209 (Version 1)
Quarter: 2019Q3

REPORT INFORMATION
  Report Type: Spontaneous
  Country: AU (occurrence: AU)
  Receive Date: 20190930
  Receipt Date: 20190930
  Transmission Date: 20191005
  Serious: Yes (Hospitalization, Other)
  Sender: FDA-Public Use
  Company Number: AU-MACLEODS PHARMACEUTICALS US LTD-MAC2019023082

PATIENT

DRUGS (4)
  1. ZOPICLONE [Suspect]
     Active Substance: ZOPICLONE
     Indication: PRODUCT USED FOR UNKNOWN INDICATION
     Dosage: 10 TABLETS OF 7.5 MILLIGRAM
     Route: 048
  2. TRAMADOL HYDROCHLORIDE 50MG TABLET [Suspect]
     Active Substance: TRAMADOL HYDROCHLORIDE
     Indication: PRODUCT USED FOR UNKNOWN INDICATION
     Dosage: SIX TABLETS OF TRAMADOL SR 50 MG
     Route: 048
  3. METHOTREXATE. [Suspect]
     Active Substance: METHOTREXATE
     Dosage: 125 TABLETS OF 10 MILLIGRAM
     Route: 048
  4. METHOTREXATE. [Suspect]
     Active Substance: METHOTREXATE
     Indication: RHEUMATOID ARTHRITIS
     Dosage: 30 MILLIGRAM, Q.W.
     Route: 065

REACTIONS (5)
  - Gastrointestinal toxicity [Unknown]
  - Intentional overdose [Unknown]
  - Aspiration [Unknown]
  - Bone marrow failure [Unknown]
  - Toxicity to various agents [Unknown]
